FAERS Safety Report 9375519 (Version 2)
Quarter: 2013Q3

REPORT INFORMATION
  Report Type: Not Available
  Country: FR (occurrence: FR)
  Receive Date: 20130628
  Receipt Date: 20130812
  Transmission Date: 20140515
  Serious: Yes (Life-Threatening, Hospitalization)
  Sender: FDA-Public Use
  Company Number: FR-NAPPMUNDI-GBR-2013-0014689

PATIENT
  Age: 41 Year
  Sex: Female
  Weight: 57 kg

DRUGS (17)
  1. OXYCONTIN LP 10 MG, COMPRIME PELLICULE A LIBERATION PROLONGEE [Suspect]
     Indication: PRODUCT USED FOR UNKNOWN INDICATION
     Dosage: 10 MG, BID
     Route: 048
     Dates: end: 20130301
  2. OXYNORM 10 MG, GELULE [Suspect]
     Indication: PRODUCT USED FOR UNKNOWN INDICATION
     Dosage: 10 MG, QID
     Route: 048
     Dates: end: 20130301
  3. SOLUPRED                           /00016201/ [Concomitant]
  4. UNFRACTIONATED HEPARIN [Concomitant]
  5. KARDEGIC [Concomitant]
  6. LERCAN [Concomitant]
  7. RAMIPRIL [Concomitant]
  8. DEPAKINE                           /00228501/ [Concomitant]
  9. DOLIPRANE [Concomitant]
  10. NORSET [Concomitant]
  11. LAROXYL [Concomitant]
  12. LYRICA [Concomitant]
  13. ZOLPIDEM [Concomitant]
  14. FORTUM                             /00559701/ [Concomitant]
  15. AMIKLIN                            /00391001/ [Concomitant]
  16. ECULIZUMAB [Concomitant]
  17. RENAGEL                            /01459901/ [Concomitant]

REACTIONS (6)
  - Overdose [Recovered/Resolved]
  - Respiratory distress [Recovered/Resolved]
  - Somnolence [Recovered/Resolved]
  - Miosis [Recovered/Resolved]
  - Convulsion [Unknown]
  - Nosocomial infection [Unknown]
